FAERS Safety Report 25102941 (Version 1)
Quarter: 2025Q1

REPORT INFORMATION
  Report Type: Spontaneous
  Country: RO (occurrence: RO)
  Receive Date: 20250321
  Receipt Date: 20250321
  Transmission Date: 20250408
  Serious: Yes (Other)
  Sender: AMGEN
  Company Number: RO-ROCHE-10000223887

PATIENT
  Age: 76 Year
  Sex: Male

DRUGS (6)
  1. BEVACIZUMAB [Suspect]
     Active Substance: BEVACIZUMAB
     Indication: Hepatocellular carcinoma
     Route: 040
  2. BEVACIZUMAB [Suspect]
     Active Substance: BEVACIZUMAB
     Indication: Hepatic cirrhosis
  3. TECENTRIQ [Suspect]
     Active Substance: ATEZOLIZUMAB
     Indication: Hepatocellular carcinoma
     Route: 040
  4. TECENTRIQ [Suspect]
     Active Substance: ATEZOLIZUMAB
     Indication: Hepatic cirrhosis
  5. Noliprel [Concomitant]
     Dosage: 2.5/0.625 MG
  6. Endolex [Concomitant]
     Dosage: UNK

REACTIONS (2)
  - Blood bilirubin increased [Unknown]
  - Gingival bleeding [Unknown]
